FAERS Safety Report 7936857-7 (Version None)
Quarter: 2011Q4

REPORT INFORMATION
  Report Type: 
  Country: None (occurrence: None)
  Receive Date: 20111123
  Receipt Date: 20111123
  Transmission Date: 20120403
  Serious: Yes (Other)
  Sender: FDA-Public Use
  Company Number: None

PATIENT
  Sex: Female
  Weight: 25 kg

DRUGS (1)
  1. MICAFUNGIN [Suspect]
     Indication: FUNGAL INFECTION
     Dosage: 100 MG
     Route: 042
     Dates: start: 20111118, end: 20111118

REACTIONS (4)
  - RASH [None]
  - ALANINE AMINOTRANSFERASE INCREASED [None]
  - TACHYCARDIA [None]
  - ASPARTATE AMINOTRANSFERASE INCREASED [None]
